FAERS Safety Report 23091352 (Version 1)
Quarter: 2023Q4

REPORT INFORMATION
  Report Type: Spontaneous
  Country: IN (occurrence: IN)
  Receive Date: 20231020
  Receipt Date: 20231020
  Transmission Date: 20240109
  Serious: Yes (Other)
  Sender: FDA-Public Use
  Company Number: IN-002147023-NVSC2023IN224090

PATIENT
  Age: 7 Year
  Sex: Male

DRUGS (1)
  1. DESFERAL [Suspect]
     Active Substance: DEFEROXAMINE MESYLATE
     Indication: Chelation therapy
     Dosage: 40 MG/KG, QD OVER 10H FOR FIVE DAYS IN A WEEK
     Route: 058

REACTIONS (1)
  - Myasthenia gravis [Recovered/Resolved]
